FAERS Safety Report 10306112 (Version 5)
Quarter: 2014Q4

REPORT INFORMATION
  Report Type: Spontaneous
  Country: US (occurrence: None)
  Receive Date: 20140711
  Receipt Date: 20141023
  Transmission Date: 20150528
  Serious: Yes (Other)
  Sender: FDA-Public Use
  Company Number: ADR-2014-01190

PATIENT
  Age: 55 Year
  Sex: Male

DRUGS (4)
  1. ORAL NARCOTICS AND PAIN MEDICATION [Suspect]
     Active Substance: UNSPECIFIED INGREDIENT
  2. BACLOFEN. [Suspect]
     Active Substance: BACLOFEN
     Indication: PAIN
  3. HYDROMORPHONE [Suspect]
     Active Substance: HYDROMORPHONE
  4. UNKNOWN MEDICATIONS [Suspect]
     Active Substance: UNSPECIFIED INGREDIENT

REACTIONS (12)
  - No therapeutic response [None]
  - Device alarm issue [None]
  - Pain [None]
  - Impaired driving ability [None]
  - Pain in extremity [None]
  - Abasia [None]
  - Myocardial infarction [None]
  - Peripheral swelling [None]
  - Incorrect dose administered by device [None]
  - Skin disorder [None]
  - Fatigue [None]
  - Device breakage [None]
